FAERS Safety Report 10360883 (Version 5)
Quarter: 2015Q4

REPORT INFORMATION
  Report Type: Report from Study
  Country: CN (occurrence: CN)
  Receive Date: 20140804
  Receipt Date: 20151109
  Transmission Date: 20160304
  Serious: Yes (Hospitalization, Other)
  Sender: FDA-Public Use
  Company Number: PHHY2014CN084656

PATIENT
  Age: 54 Year
  Sex: Female
  Weight: 67 kg

DRUGS (7)
  1. VINPOCETINE [Concomitant]
     Active Substance: VINPOCETINE
     Indication: CEREBROSPINAL FLUID CIRCULATION DISORDER
     Dosage: 20 MG, QD
     Route: 065
     Dates: start: 20140721, end: 20140730
  2. ADENOSINE CYCLOPHOSPHATE [Concomitant]
     Active Substance: ADENOSINE
     Indication: NUTRITIONAL SUPPLEMENTATION
     Dosage: 160 MG, QD
     Route: 065
     Dates: start: 20140721, end: 20140730
  3. EXFORGE [Suspect]
     Active Substance: AMLODIPINE BESYLATE\VALSARTAN
     Indication: HYPERTENSION
     Dosage: 1 DF, QD
     Route: 048
     Dates: start: 201308
  4. GLUTATHIONE [Concomitant]
     Active Substance: GLUTATHIONE
     Indication: PROPHYLAXIS
     Dosage: 0.2 G, BID
     Route: 048
     Dates: start: 20140721, end: 201408
  5. PRAVASTATIN [Concomitant]
     Active Substance: PRAVASTATIN\PRAVASTATIN SODIUM
     Indication: BODY FAT DISORDER
     Dosage: 40 MG, QD
     Route: 048
     Dates: start: 20140721, end: 201408
  6. ISOSORBIDE DINITRATE. [Concomitant]
     Active Substance: ISOSORBIDE DINITRATE
     Indication: CORONARY ARTERY DILATATION
     Dosage: 5 MG, TID
     Route: 048
     Dates: start: 20140721, end: 201408
  7. ALFACALCIDOL [Concomitant]
     Active Substance: ALFACALCIDOL
     Indication: OSTEOPOROSIS
     Dosage: 1 UG, QD
     Route: 048
     Dates: start: 20140721, end: 201408

REACTIONS (3)
  - Hepatic steatosis [Recovering/Resolving]
  - Urine albumin/creatinine ratio increased [Recovering/Resolving]
  - Hypertriglyceridaemia [Recovering/Resolving]

NARRATIVE: CASE EVENT DATE: 20140707
